FAERS Safety Report 5227056-0 (Version None)
Quarter: 2007Q1

REPORT INFORMATION
  Report Type: 
  Country: None (occurrence: None)
  Receive Date: 20070201
  Receipt Date: 20070201
  Transmission Date: 20070707
  Serious: Yes (Hospitalization)
  Sender: FDA-Public Use
  Company Number: None

PATIENT
  Age: 85 Year
  Sex: Female

DRUGS (3)
  1. VANCOMYCIN [Suspect]
     Indication: BACTERAEMIA
     Dosage: 1 GM BID IV
     Route: 042
     Dates: start: 20061213, end: 20061219
  2. VANCOMYCIN [Suspect]
     Indication: NERVOUS SYSTEM DISORDER
     Dosage: 1 GM BID IV
     Route: 042
     Dates: start: 20061213, end: 20061219
  3. VANCOMYCIN [Suspect]
     Indication: UROSEPSIS
     Dosage: 1 GM BID IV
     Route: 042
     Dates: start: 20061213, end: 20061219

REACTIONS (2)
  - LINEAR IGA DISEASE [None]
  - RENAL FAILURE ACUTE [None]
